FAERS Safety Report 18325805 (Version 1)
Quarter: 2020Q3

REPORT INFORMATION
  Report Type: Spontaneous
  Country: US (occurrence: US)
  Receive Date: 20200929
  Receipt Date: 20200929
  Transmission Date: 20201103
  Serious: No
  Sender: FDA-Public Use
  Company Number: US-PFIZER INC-2020373308

PATIENT
  Age: 80 Year
  Sex: Female

DRUGS (3)
  1. IBRANCE [Suspect]
     Active Substance: PALBOCICLIB
     Dosage: 75 MG, CYCLIC (FOR 2 WEEKS THEN TAKES 2 WEEKS OFF)
     Dates: end: 2020
  2. IBRANCE [Suspect]
     Active Substance: PALBOCICLIB
     Indication: BREAST CANCER FEMALE
     Dosage: 75 MG, CYCLIC (X 21 DAYS EVERY 28 DAYS)
     Dates: start: 20190614
  3. IBRANCE [Suspect]
     Active Substance: PALBOCICLIB
     Dosage: 75 MG, CYCLIC (FOR 2 WEEKS THEN TAKES 2 WEEKS OFF)
     Dates: start: 202009

REACTIONS (2)
  - Neutrophil count decreased [Unknown]
  - Fatigue [Unknown]
